FAERS Safety Report 9753797 (Version 2)
Quarter: 2015Q3

REPORT INFORMATION
  Report Type: Spontaneous
  Country: US (occurrence: US)
  Receive Date: 20131213
  Receipt Date: 20150805
  Transmission Date: 20151125
  Serious: No
  Sender: FDA-Public Use
  Company Number: US-GILEAD-2010-0027098

PATIENT
  Age: 72 Year
  Sex: Male
  Weight: 104.33 kg

DRUGS (21)
  1. LETAIRIS [Suspect]
     Active Substance: AMBRISENTAN
     Indication: PULMONARY ARTERIAL HYPERTENSION
     Route: 048
     Dates: start: 20081223
  2. MULTIVITAMIN [Concomitant]
     Active Substance: VITAMINS
  3. ASPIRIN. [Concomitant]
     Active Substance: ASPIRIN
  4. VITAMIN E [Concomitant]
     Active Substance: .ALPHA.-TOCOPHEROL
  5. AMLODIPINE BESYLATE. [Concomitant]
     Active Substance: AMLODIPINE BESYLATE
  6. LIPITOR [Concomitant]
     Active Substance: ATORVASTATIN CALCIUM
  7. VITAMIN D [Concomitant]
     Active Substance: CHOLECALCIFEROL
  8. CO-Q10 [Concomitant]
  9. GLUCOSAMINE [Concomitant]
     Active Substance: GLUCOSAMINE
  10. MSM [Concomitant]
     Active Substance: DIMETHYL SULFONE
  11. ETODOLAC. [Concomitant]
     Active Substance: ETODOLAC
  12. FLOMAX [Concomitant]
     Active Substance: TAMSULOSIN HYDROCHLORIDE
  13. OCUVITE [Concomitant]
     Active Substance: VITAMINS
  14. CALCIUM [Concomitant]
     Active Substance: CALCIUM
  15. TRIAMTERENE AND HYDROCHLOROTHIAZIDE [Concomitant]
     Active Substance: HYDROCHLOROTHIAZIDE\TRIAMTERENE
  16. NORVASC [Concomitant]
     Active Substance: AMLODIPINE BESYLATE
  17. PROSCAR [Concomitant]
     Active Substance: FINASTERIDE
  18. CITRACAL [Concomitant]
     Active Substance: CALCIUM CITRATE
  19. VITAMIN C [Concomitant]
     Active Substance: ASCORBIC ACID
  20. MAGNESIUM [Concomitant]
     Active Substance: MAGNESIUM
  21. LUPRON [Concomitant]
     Active Substance: LEUPROLIDE ACETATE

REACTIONS (2)
  - Peripheral swelling [Unknown]
  - Night sweats [Unknown]
